FAERS Safety Report 5228077-4 (Version None)
Quarter: 2007Q1

REPORT INFORMATION
  Report Type: 
  Country: None (occurrence: None)
  Receive Date: 20061201
  Receipt Date: 20061011
  Transmission Date: 20070707
  Serious: No
  Sender: FDA-Public Use
  Company Number: US200610002258

PATIENT
  Age: 40 Year
  Sex: Female

DRUGS (3)
  1. CYMBALTA [Suspect]
     Indication: DEPRESSION
     Dosage: 30 MG, ORAL
     Route: 048
     Dates: start: 20061009, end: 20061001
  2. WELLBUTRIN (IBUPROPION HYDROCHLORIDE) [Concomitant]
  3. TOPAMAX /AUS/ (TOPIRAMATE) [Concomitant]

REACTIONS (1)
  - INFLUENZA LIKE ILLNESS [None]
